FAERS Safety Report 4742576-0 (Version None)
Quarter: 2005Q3

REPORT INFORMATION
  Report Type: 
  Country: None (occurrence: None)
  Receive Date: 20050808
  Receipt Date: 20050726
  Transmission Date: 20060218
  Serious: Yes (Death, Life-Threatening, Hospitalization, Other)
  Sender: FDA-Public Use
  Company Number: USA0506101074

PATIENT
  Age: 62 Year
  Sex: Male
  Weight: 89 kg

DRUGS (10)
  1. ALIMTA [Suspect]
     Indication: MESOTHELIOMA
     Dosage: 400 MG WEEK
     Dates: start: 20040421, end: 20050503
  2. GEMZAR [Suspect]
     Indication: MESOTHELIOMA
     Dosage: 100 MG WEEK
     Dates: start: 20041207, end: 20050405
  3. CISPLATIN [Concomitant]
  4. VITAMIN B-12 [Concomitant]
  5. FOLIC ACID [Concomitant]
  6. PRILOSEC [Concomitant]
  7. VICODIN [Concomitant]
  8. TESSALON [Concomitant]
  9. FUROSEMIDE [Concomitant]
  10. SPIRONOLACTONE [Concomitant]

REACTIONS (9)
  - BLOOD ALKALINE PHOSPHATASE INCREASED [None]
  - BLOOD SODIUM DECREASED [None]
  - DISEASE PROGRESSION [None]
  - DYSPNOEA [None]
  - GENERAL PHYSICAL HEALTH DETERIORATION [None]
  - HAEMATOCRIT DECREASED [None]
  - HAEMOGLOBIN DECREASED [None]
  - OTOTOXICITY [None]
  - PLEURAL EFFUSION [None]
